FAERS Safety Report 5047837-6 (Version None)
Quarter: 2006Q2

REPORT INFORMATION
  Report Type: 
  Country: None (occurrence: None)
  Receive Date: 20060601
  Receipt Date: 20060320
  Transmission Date: 20061013
  Serious: No
  Sender: FDA-Public Use
  Company Number: 2006PV010542

PATIENT
  Age: 54 Year
  Sex: Female
  Weight: 87.0906 kg

DRUGS (4)
  1. BYETTA [Suspect]
     Indication: DIABETES MELLITUS NON-INSULIN-DEPENDENT
     Dosage: SEE IMAGE
     Route: 058
     Dates: start: 20050801, end: 20060301
  2. BYETTA [Suspect]
     Indication: DIABETES MELLITUS NON-INSULIN-DEPENDENT
     Dosage: SEE IMAGE
     Route: 058
     Dates: start: 20060301
  3. UNKNOWN SEIZURE MEDICATION [Suspect]
     Indication: CONVULSION PROPHYLAXIS
     Dates: start: 20060201, end: 20060101
  4. TOPAMAX [Concomitant]

REACTIONS (2)
  - NAUSEA [None]
  - WEIGHT DECREASED [None]
